FAERS Safety Report 4407303-5 (Version None)
Quarter: 2004Q3

REPORT INFORMATION
  Report Type: 
  Country: None (occurrence: None)
  Receive Date: 20040723
  Receipt Date: 20040723
  Transmission Date: 20050211
  Serious: Yes (Hospitalization)
  Sender: FDA-Public Use
  Company Number: None

PATIENT
  Weight: 66.2252 kg

DRUGS (1)
  1. BORTEZOMIB INJECTION [Suspect]
     Indication: MULTIPLE MYELOMA
     Dosage: MON, FRI CYCLE 4 DAY 8
     Dates: start: 20040601

REACTIONS (2)
  - NAUSEA [None]
  - VOMITING [None]
